FAERS Safety Report 4642387-0 (Version None)
Quarter: 2005Q2

REPORT INFORMATION
  Report Type: 
  Country: None (occurrence: None)
  Receive Date: 20050422
  Receipt Date: 20050331
  Transmission Date: 20051028
  Serious: Yes (Death)
  Sender: FDA-Public Use
  Company Number: SI-GLAXOSMITHKLINE-B0377100A

PATIENT
  Age: 79 Year
  Sex: Female
  Weight: 50 kg

DRUGS (9)
  1. VALTREX [Suspect]
     Indication: HERPES ZOSTER
     Dosage: 1000MG THREE TIMES PER DAY
     Route: 048
     Dates: start: 20050225, end: 20050303
  2. WARFARIN SODIUM [Suspect]
     Indication: ILL-DEFINED DISORDER
     Route: 048
     Dates: start: 20010101
  3. IRUZID [Concomitant]
     Indication: DRUG USE FOR UNKNOWN INDICATION
     Dosage: 1TAB PER DAY
     Route: 048
     Dates: start: 20040101
  4. LANITOP [Concomitant]
     Indication: DRUG USE FOR UNKNOWN INDICATION
     Dosage: .1MG SEE DOSAGE TEXT
     Route: 048
     Dates: start: 20041201
  5. OLICARD [Concomitant]
     Indication: DRUG USE FOR UNKNOWN INDICATION
     Dosage: 40MG UNKNOWN
     Route: 048
     Dates: start: 19990101
  6. SINVACOR [Concomitant]
     Indication: DRUG USE FOR UNKNOWN INDICATION
     Dosage: 40MG PER DAY
     Route: 048
     Dates: start: 20030101
  7. CORDARONE [Concomitant]
     Indication: DRUG USE FOR UNKNOWN INDICATION
     Dosage: 600MG PER DAY
     Route: 048
     Dates: start: 20050101
  8. CONTROLOC [Concomitant]
     Indication: DRUG USE FOR UNKNOWN INDICATION
     Route: 065
  9. LEKADOL [Concomitant]
     Indication: DRUG USE FOR UNKNOWN INDICATION

REACTIONS (4)
  - BLOOD PRESSURE SYSTOLIC INCREASED [None]
  - CEREBRAL HAEMORRHAGE [None]
  - CEREBROVASCULAR ACCIDENT [None]
  - COMA [None]
